FAERS Safety Report 24411253 (Version 1)
Quarter: 2024Q4

REPORT INFORMATION
  Report Type: Spontaneous
  Country: CN (occurrence: CN)
  Receive Date: 20241008
  Receipt Date: 20241008
  Transmission Date: 20250114
  Serious: Yes (Other)
  Sender: PFIZER
  Company Number: CN-PFIZER INC-PV202400129571

PATIENT
  Age: 45 Year
  Sex: Female
  Weight: 50 kg

DRUGS (3)
  1. EPIRUBICIN [Suspect]
     Active Substance: EPIRUBICIN
     Indication: Uterine leiomyosarcoma
     Dosage: 105 MG, 1X/DAY
     Route: 041
     Dates: start: 20240903, end: 20240903
  2. PACLITAXEL [Suspect]
     Active Substance: PACLITAXEL
     Indication: Uterine leiomyosarcoma
     Dosage: 200 MG, 1X/DAY, D1, D8
     Route: 041
     Dates: start: 20240903, end: 20240903
  3. PACLITAXEL [Suspect]
     Active Substance: PACLITAXEL
     Dosage: 200 MG, 1X/DAY, D1, D8
     Route: 041
     Dates: start: 20240910, end: 20240910

REACTIONS (1)
  - Hepatic function abnormal [Recovering/Resolving]

NARRATIVE: CASE EVENT DATE: 20240923
